FAERS Safety Report 7546466-X (Version None)
Quarter: 2011Q2

REPORT INFORMATION
  Report Type: 
  Country: None (occurrence: None)
  Receive Date: 20110524
  Receipt Date: 20110303
  Transmission Date: 20111010
  Serious: No
  Sender: FDA-Public Use
  Company Number: 028649

PATIENT
  Sex: Female
  Weight: 48.1 kg

DRUGS (5)
  1. M.V.I. [Concomitant]
  2. CIMZIA [Suspect]
     Indication: CROHN'S DISEASE
     Dosage: (400 MG 1X/2 WEEKS, ONE 200MG IN EACH LEG SUBCUTANEOUS)
     Route: 058
     Dates: start: 20110301
  3. FISH OIL [Concomitant]
  4. PREDNISONE [Concomitant]
  5. ERGOCALCIFEROL [Concomitant]

REACTIONS (5)
  - TREMOR [None]
  - PAIN [None]
  - RHINORRHOEA [None]
  - HEADACHE [None]
  - PYREXIA [None]
